FAERS Safety Report 9435345 (Version 3)
Quarter: 2013Q4

REPORT INFORMATION
  Report Type: Report from Study
  Country: US (occurrence: US)
  Receive Date: 20130801
  Receipt Date: 20131001
  Transmission Date: 20140711
  Serious: Yes (Hospitalization)
  Sender: FDA-Public Use
  Company Number: US-GLAXOSMITHKLINE-A0959846E

PATIENT
  Age: 53 Year
  Sex: Female
  Weight: 96.5 kg

DRUGS (6)
  1. DABRAFENIB [Suspect]
     Indication: METASTATIC MALIGNANT MELANOMA
     Dosage: 150MG TWICE PER DAY
     Route: 048
     Dates: start: 20110914
  2. TRAMETINIB [Suspect]
     Indication: METASTATIC MALIGNANT MELANOMA
     Dosage: 2MG PER DAY
     Route: 048
     Dates: start: 20110914
  3. NORMAL SALINE [Concomitant]
     Indication: PANCREATITIS
     Dosage: 1L SINGLE DOSE
     Route: 042
     Dates: start: 20130719, end: 20130719
  4. DILAUDID [Concomitant]
     Indication: PANCREATITIS
     Dosage: .5MG SINGLE DOSE
     Dates: start: 20130719, end: 20130719
  5. ZOFRAN [Concomitant]
     Indication: PANCREATITIS
     Dosage: 4MG SINGLE DOSE
     Dates: start: 20130719, end: 20130719
  6. PROTONIX [Concomitant]
     Indication: PANCREATITIS
     Dosage: 40MG SINGLE DOSE
     Dates: start: 20130719, end: 20130719

REACTIONS (1)
  - Pancreatitis [Recovered/Resolved with Sequelae]
